FAERS Safety Report 22137541 (Version 1)
Quarter: 2023Q1

REPORT INFORMATION
  Report Type: Report from Study
  Country: DO (occurrence: DO)
  Receive Date: 20230325
  Receipt Date: 20230325
  Transmission Date: 20230418
  Serious: Yes (Hospitalization, Other)
  Sender: FDA-Public Use
  Company Number: DO-ABBVIE-4700544

PATIENT
  Sex: Female
  Weight: 68 kg

DRUGS (6)
  1. HUMIRA [Suspect]
     Active Substance: ADALIMUMAB
     Indication: Ankylosing spondylitis
     Route: 058
     Dates: start: 20150113, end: 20230216
  2. Saline Solution 0.9% [Concomitant]
     Indication: Erysipelas
     Dosage: 1000 CUBIC CENTIMETER
     Route: 042
     Dates: start: 20230226, end: 20230226
  3. Saline Solution 0.9% [Concomitant]
     Indication: Erysipelas
     Dosage: IN EMERGENCY
     Route: 042
     Dates: start: 20230228, end: 20230314
  4. HYPERTONIC DEXTROSE [Concomitant]
     Active Substance: DEXTROSE MONOHYDRATE
     Indication: Hypoglycaemia
     Dates: start: 2023
  5. CELECOXIB [Concomitant]
     Active Substance: CELECOXIB
     Indication: Pain management
     Route: 048
     Dates: start: 20230314
  6. OMEPRAZOLE [Concomitant]
     Active Substance: OMEPRAZOLE
     Indication: Pain prophylaxis
     Dosage: 1 TABLET
     Route: 048
     Dates: start: 20230314

REACTIONS (13)
  - Erysipelas [Recovering/Resolving]
  - Skin necrosis [Recovering/Resolving]
  - Skin disorder [Recovering/Resolving]
  - Malaise [Recovering/Resolving]
  - Erythema [Recovering/Resolving]
  - Haemoglobin decreased [Recovering/Resolving]
  - Skin discolouration [Recovering/Resolving]
  - Pain [Recovering/Resolving]
  - Pain [Recovering/Resolving]
  - Thrombosis [Recovering/Resolving]
  - Pyrexia [Recovering/Resolving]
  - Oedema peripheral [Recovering/Resolving]
  - Hypoglycaemia [Recovering/Resolving]

NARRATIVE: CASE EVENT DATE: 20230101
